FAERS Safety Report 24415107 (Version 2)
Quarter: 2024Q4

REPORT INFORMATION
  Report Type: Report from Study
  Country: SA (occurrence: SA)
  Receive Date: 20241009
  Receipt Date: 20241107
  Transmission Date: 20250114
  Serious: Yes (Other)
  Sender: GLAXOSMITHKLINE
  Company Number: SA-GSK-SA2024EME097844

PATIENT

DRUGS (1)
  1. MEPOLIZUMAB [Suspect]
     Active Substance: MEPOLIZUMAB
     Indication: Asthma
     Dosage: 100 MG, MO
     Dates: start: 20240610

REACTIONS (8)
  - Apnoea [Not Recovered/Not Resolved]
  - Obstructive sleep apnoea syndrome [Unknown]
  - Dry throat [Not Recovered/Not Resolved]
  - Viral infection [Recovered/Resolved]
  - Pyrexia [Recovered/Resolved]
  - Cough [Recovered/Resolved]
  - Respiratory tract congestion [Recovered/Resolved]
  - Product dose omission issue [Unknown]

NARRATIVE: CASE EVENT DATE: 20240708
